FAERS Safety Report 4307032-2 (Version None)
Quarter: 2004Q1

REPORT INFORMATION
  Report Type: 
  Country: None (occurrence: None)
  Receive Date: 20040227
  Receipt Date: 20040220
  Transmission Date: 20041129
  Serious: Yes (Hospitalization)
  Sender: FDA-Public Use
  Company Number: US-ROCHE-359463

PATIENT
  Age: 50 Year
  Sex: Male
  Weight: 93 kg

DRUGS (6)
  1. PEG-INTERFERON ALFA 2A (RO 25-8310) [Suspect]
     Route: 058
     Dates: start: 20020729
  2. RIBAVIRIN [Suspect]
     Route: 048
     Dates: start: 20020729
  3. MONOPRIL [Concomitant]
  4. ZERIT [Concomitant]
  5. ZIAGEN [Concomitant]
  6. KALETRA [Concomitant]

REACTIONS (2)
  - ABDOMINAL PAIN UPPER [None]
  - HAEMATURIA [None]
